FAERS Safety Report 23007145 (Version 2)
Quarter: 2024Q4

REPORT INFORMATION
  Report Type: Spontaneous
  Country: CA (occurrence: CA)
  Receive Date: 20230929
  Receipt Date: 20241007
  Transmission Date: 20250114
  Serious: Yes (Hospitalization, Other)
  Sender: AUROBINDO
  Company Number: CA-AUROBINDO-AUR-APL-2023-059951

PATIENT
  Age: 16 Year
  Sex: Male

DRUGS (1)
  1. MILRINONE LACTATE [Suspect]
     Active Substance: MILRINONE LACTATE
     Indication: Cardiac failure
     Dosage: UNK
     Route: 065

REACTIONS (3)
  - Cardiac failure chronic [Recovering/Resolving]
  - Drug ineffective [Recovering/Resolving]
  - Product use issue [Recovering/Resolving]
